FAERS Safety Report 14414867 (Version 1)
Quarter: 2018Q1

REPORT INFORMATION
  Report Type: Spontaneous
  Country: US (occurrence: US)
  Receive Date: 20180120
  Receipt Date: 20180120
  Transmission Date: 20180509
  Serious: Yes (Other)
  Sender: FDA-Public Use
  Company Number: US-JNJFOC-20180119645

PATIENT
  Sex: Female

DRUGS (2)
  1. ROGAINE [Suspect]
     Active Substance: MINOXIDIL
     Route: 065
  2. ROGAINE [Suspect]
     Active Substance: MINOXIDIL
     Indication: HAIR GROWTH ABNORMAL
     Route: 065

REACTIONS (13)
  - Dizziness [Unknown]
  - Arrhythmia [Unknown]
  - Oedema peripheral [Unknown]
  - Peripheral swelling [Unknown]
  - Migraine [Unknown]
  - Hypersensitivity [Unknown]
  - Hypotension [Unknown]
  - Joint swelling [Unknown]
  - Dyspnoea [Unknown]
  - Swelling face [Unknown]
  - Erythema [Unknown]
  - Fluid retention [Unknown]
  - Eye swelling [Unknown]
